FAERS Safety Report 10027246 (Version 2)
Quarter: 2014Q4

REPORT INFORMATION
  Report Type: Spontaneous
  Country: US (occurrence: US)
  Receive Date: 20140321
  Receipt Date: 20141007
  Transmission Date: 20150528
  Serious: Yes (Other)
  Sender: FDA-Public Use
  Company Number: US-BAYER-2014-043093

PATIENT
  Age: 28 Year
  Sex: Female
  Weight: 56.24 kg

DRUGS (1)
  1. MIRENA [Suspect]
     Active Substance: LEVONORGESTREL
     Indication: CONTRACEPTION
     Dosage: 20 MCG/24HR, CONT
     Route: 015
     Dates: start: 200605, end: 200608

REACTIONS (12)
  - Abdominal pain [None]
  - Emotional distress [None]
  - Pelvic pain [None]
  - Menorrhagia [None]
  - Vaginal discharge [None]
  - Pelvic inflammatory disease [None]
  - Psychogenic pain disorder [None]
  - Pain [None]
  - Device issue [None]
  - Injury [None]
  - Anhedonia [None]
  - Depression [None]

NARRATIVE: CASE EVENT DATE: 2006
